FAERS Safety Report 9335920 (Version 2)
Quarter: 2013Q4

REPORT INFORMATION
  Report Type: Spontaneous
  Country: US (occurrence: US)
  Receive Date: 20130606
  Receipt Date: 20131008
  Transmission Date: 20140711
  Serious: No
  Sender: FDA-Public Use
  Company Number: US-AMGEN-USASP2013031650

PATIENT
  Age: 34 Year
  Sex: Female

DRUGS (8)
  1. PROLIA [Suspect]
     Indication: OSTEOPENIA
     Dosage: UNK
     Dates: start: 201212
  2. SINGULAIR [Concomitant]
     Dosage: 10 MG, UNK
  3. TRAZODONE [Concomitant]
     Dosage: 50 MG, UNK
  4. AMBIEN [Concomitant]
     Indication: INSOMNIA
     Dosage: UNK UNK, AS NECESSARY
  5. LORAZEPAM [Concomitant]
     Indication: INSOMNIA
     Dosage: 0.5 MG, AS NECESSARY
  6. VENTOLIN                           /00139501/ [Concomitant]
     Dosage: UNK UNK, AS NECESSARY
  7. CALCIUM [Concomitant]
  8. MAGNESIUM [Concomitant]

REACTIONS (14)
  - Muscle fatigue [Recovering/Resolving]
  - Asthenia [Recovering/Resolving]
  - Bone pain [Unknown]
  - Alopecia [Unknown]
  - Headache [Unknown]
  - Pyrexia [Unknown]
  - Feeling cold [Unknown]
  - Peripheral coldness [Unknown]
  - Irritability [Unknown]
  - Nervousness [Unknown]
  - Blood pressure decreased [Unknown]
  - Bladder disorder [Unknown]
  - Urine output increased [Unknown]
  - Pollakiuria [Unknown]
